FAERS Safety Report 23332762 (Version 2)
Quarter: 2024Q1

REPORT INFORMATION
  Report Type: Spontaneous
  Country: US (occurrence: US)
  Receive Date: 20231222
  Receipt Date: 20240207
  Transmission Date: 20240410
  Serious: No
  Sender: FDA-Public Use
  Company Number: US-PFIZER INC-PV202300202420

PATIENT
  Sex: Male
  Weight: 99.773 kg

DRUGS (3)
  1. XELJANZ [Suspect]
     Active Substance: TOFACITINIB CITRATE
     Indication: Rheumatoid arthritis
     Dosage: 5 MG, 2X/DAY
     Dates: start: 2019
  2. RASUVO [Concomitant]
     Active Substance: METHOTREXATE SODIUM
     Dosage: UNK (25MG/.5ML)
     Dates: start: 2014
  3. PREDNISONE [Concomitant]
     Active Substance: PREDNISONE
     Dosage: UNK
     Dates: start: 2014

REACTIONS (1)
  - Hypoacusis [Unknown]
